FAERS Safety Report 11740187 (Version 2)
Quarter: 2015Q4

REPORT INFORMATION
  Report Type: Spontaneous
  Country: JP (occurrence: JP)
  Receive Date: 20151113
  Receipt Date: 20151204
  Transmission Date: 20160304
  Serious: Yes (Death, Other)
  Sender: FDA-Public Use
  Company Number: JP-009507513-1511JPN006574

PATIENT
  Age: 48 Year
  Sex: Female

DRUGS (3)
  1. AVASTIN [Suspect]
     Active Substance: BEVACIZUMAB
     Indication: GLIOBLASTOMA
     Dosage: DAILY DOSE UNKNOWN, EVERY 2 WEEKS
     Route: 065
  2. METHIONINE [Concomitant]
     Active Substance: METHIONINE
     Dosage: DAILY DOSE UNKNOWN
     Route: 065
  3. TEMOZOLOMIDE. [Suspect]
     Active Substance: TEMOZOLOMIDE
     Indication: GLIOBLASTOMA
     Dosage: UNK, QM
     Route: 048

REACTIONS (2)
  - Neoplasm progression [Fatal]
  - Drug ineffective [Unknown]
